FAERS Safety Report 5407222-1 (Version None)
Quarter: 2007Q3

REPORT INFORMATION
  Report Type: 
  Country: None (occurrence: None)
  Receive Date: 20070807
  Receipt Date: 20070801
  Transmission Date: 20080115
  Serious: Yes (Hospitalization)
  Sender: FDA-Public Use
  Company Number: A0667664A

PATIENT
  Age: 62 Year
  Sex: Male

DRUGS (3)
  1. ARIXTRA [Suspect]
     Indication: THROMBOSIS PROPHYLAXIS
     Dosage: 2.5MG PER DAY
     Route: 058
     Dates: start: 20070730
  2. NORCO [Concomitant]
  3. ANTIHYPERTENSIVE [Concomitant]

REACTIONS (2)
  - HAEMATOCHEZIA [None]
  - POST PROCEDURAL COMPLICATION [None]
